FAERS Safety Report 6755713-3 (Version None)
Quarter: 2010Q2

REPORT INFORMATION
  Report Type: 
  Country: None (occurrence: None)
  Receive Date: 20100604
  Receipt Date: 20100525
  Transmission Date: 20101027
  Serious: Yes (Other)
  Sender: FDA-Public Use
  Company Number: FR-PFIZER INC-2010053519

PATIENT
  Age: 2 Year
  Sex: Male
  Weight: 13.3 kg

DRUGS (1)
  1. ZITHROMAX [Suspect]
     Indication: OROPHARYNGEAL PAIN
     Dosage: 1 DOSE/13KG ONCE DAILY
     Route: 048
     Dates: start: 20100423

REACTIONS (2)
  - EATING DISORDER [None]
  - GINGIVITIS [None]
